FAERS Safety Report 6933992-7 (Version None)
Quarter: 2010Q3

REPORT INFORMATION
  Report Type: 
  Country: None (occurrence: None)
  Receive Date: 20100820
  Receipt Date: 20100809
  Transmission Date: 20110219
  Serious: Yes (Death)
  Sender: FDA-Public Use
  Company Number: US-GENZYME-CLOF-1001130

PATIENT

DRUGS (3)
  1. CLOLAR [Suspect]
     Indication: ACUTE LEUKAEMIA
     Dosage: UNK UNK, QDX5
     Route: 042
  2. BUSULFAN [Suspect]
     Indication: ACUTE LEUKAEMIA
     Dosage: 3.2 MG/KG, QD
     Route: 042
  3. DEXAMETHASONE [Concomitant]
     Indication: PROPHYLAXIS
     Dosage: 12 MG, QDX5
     Route: 042

REACTIONS (1)
  - ACUTE GRAFT VERSUS HOST DISEASE [None]
